FAERS Safety Report 8022470-2 (Version None)
Quarter: 2011Q4

REPORT INFORMATION
  Report Type: 
  Country: None (occurrence: None)
  Receive Date: 20111230
  Receipt Date: 20111219
  Transmission Date: 20120403
  Serious: Yes (Hospitalization, Other)
  Sender: FDA-Public Use
  Company Number: 2011SP039126

PATIENT
  Age: 61 Year
  Sex: Male
  Weight: 47 kg

DRUGS (6)
  1. SULFAMETHOXAZOLE AND TRIMETHOPRIM [Suspect]
     Indication: ANTIFUNGAL PROPHYLAXIS
     Dosage: QD;PO
     Route: 048
     Dates: start: 20110518, end: 20110628
  2. ZONISAMIDE [Concomitant]
  3. PRIMPERAN TAB [Concomitant]
  4. TEMODAL [Suspect]
     Indication: GLIOBLASTOMA MULTIFORME
     Dosage: 140 MG;QD;PO
     Route: 048
     Dates: start: 20110519, end: 20110629
  5. MOTILIUM [Concomitant]
  6. TEGRETOL [Concomitant]

REACTIONS (10)
  - STEVENS-JOHNSON SYNDROME [None]
  - HERPES SIMPLEX [None]
  - SKIN BACTERIAL INFECTION [None]
  - BACTERIAL SEPSIS [None]
  - PANCYTOPENIA [None]
  - MYCOPLASMA INFECTION [None]
  - VISUAL ACUITY REDUCED [None]
  - PNEUMONIA [None]
  - NEUTROPHIL COUNT DECREASED [None]
  - LIVER DISORDER [None]
